FAERS Safety Report 16440115 (Version 1)
Quarter: 2019Q2

REPORT INFORMATION
  Report Type: Report from Study
  Country: JP (occurrence: JP)
  Receive Date: 20190617
  Receipt Date: 20190617
  Transmission Date: 20190711
  Serious: Yes (Death, Hospitalization)
  Sender: FDA-Public Use
  Company Number: JP-ACTELION-A-CH2017-161400

PATIENT
  Age: 52 Year
  Sex: Female

DRUGS (5)
  1. REVATIO [Suspect]
     Active Substance: SILDENAFIL CITRATE
     Dosage: 20 MG, BID
     Route: 048
     Dates: start: 20180201, end: 20180626
  2. OXYGEN. [Concomitant]
     Active Substance: OXYGEN
  3. REVATIO [Suspect]
     Active Substance: SILDENAFIL CITRATE
     Indication: PULMONARY ARTERIAL HYPERTENSION
     Dosage: 10 MG, TID
     Route: 048
     Dates: start: 20161117, end: 20180131
  4. TRAZENTA [Concomitant]
     Active Substance: LINAGLIPTIN
  5. OPSUMIT [Suspect]
     Active Substance: MACITENTAN
     Indication: PULMONARY HYPERTENSION
     Dosage: 10 MG, QD
     Route: 048
     Dates: start: 20161111, end: 20180626

REACTIONS (3)
  - Blood pressure decreased [Recovering/Resolving]
  - Sudden death [Fatal]
  - Extremity necrosis [Recovering/Resolving]

NARRATIVE: CASE EVENT DATE: 20161121
